FAERS Safety Report 9419305 (Version 1)
Quarter: 2013Q3

REPORT INFORMATION
  Report Type: Spontaneous
  Country: US (occurrence: US)
  Receive Date: 20130725
  Receipt Date: 20130725
  Transmission Date: 20140515
  Serious: No
  Sender: FDA-Public Use
  Company Number: US-GLAXOSMITHKLINE-A1006214A

PATIENT
  Age: 55 Year
  Sex: Female

DRUGS (1)
  1. LAMICTAL [Suspect]
     Indication: BIPOLAR DISORDER
     Route: 048
     Dates: start: 20121217, end: 20121220

REACTIONS (4)
  - Mood altered [Unknown]
  - Depression [Unknown]
  - Anxiety [Unknown]
  - Crying [Unknown]
